FAERS Safety Report 18450022 (Version 2)
Quarter: 2020Q4

REPORT INFORMATION
  Report Type: Report from Study
  Country: BR (occurrence: BR)
  Receive Date: 20201030
  Receipt Date: 20201127
  Transmission Date: 20210114
  Serious: Yes (Other)
  Sender: FDA-Public Use
  Company Number: BR-JNJFOC-20201034930

PATIENT
  Age: 57 Year
  Sex: Female

DRUGS (1)
  1. SIMPONI [Suspect]
     Active Substance: GOLIMUMAB
     Indication: RHEUMATOID ARTHRITIS
     Route: 058

REACTIONS (9)
  - Influenza [Unknown]
  - Pain [Unknown]
  - Herpes zoster [Unknown]
  - Injection site extravasation [Unknown]
  - Device delivery system issue [Unknown]
  - Application site haemorrhage [Unknown]
  - Product dose omission issue [Unknown]
  - Peau d^orange [Unknown]
  - Multiple allergies [Unknown]

NARRATIVE: CASE EVENT DATE: 20201017
